FAERS Safety Report 13732646 (Version 3)
Quarter: 2017Q3

REPORT INFORMATION
  Report Type: Spontaneous
  Country: IT (occurrence: IT)
  Receive Date: 20170707
  Receipt Date: 20170724
  Transmission Date: 20171127
  Serious: Yes (Hospitalization)
  Sender: FDA-Public Use
  Company Number: PHHY2017IT097060

PATIENT
  Age: 89 Year
  Sex: Female
  Weight: 45 kg

DRUGS (7)
  1. LANOXIN [Interacting]
     Active Substance: DIGOXIN
     Indication: ATRIAL FIBRILLATION
     Dosage: 125 UG, DAILY
     Route: 048
  2. ESIDREX [Interacting]
     Active Substance: HYDROCHLOROTHIAZIDE
     Indication: DIURETIC THERAPY
     Dosage: 25 MG, DAILY
     Route: 048
     Dates: end: 20170610
  3. NEO-LOTAN [Concomitant]
     Active Substance: LOSARTAN POTASSIUM
     Indication: HYPERTENSION
     Dosage: 50 MG, UNK
     Route: 048
  4. DILTIAZEM. [Suspect]
     Active Substance: DILTIAZEM
     Indication: ATRIAL FIBRILLATION
     Dosage: 120 MG, DAILY
     Route: 048
     Dates: end: 20170610
  5. COUMADIN [Concomitant]
     Active Substance: WARFARIN SODIUM
     Indication: ATRIAL FIBRILLATION
     Dosage: 5 MG, UNK
     Route: 048
  6. SPIRIVA [Concomitant]
     Active Substance: TIOTROPIUM BROMIDE MONOHYDRATE
     Indication: BRONCHOPNEUMOPATHY
     Dosage: 18 UG, UNK
     Route: 055
  7. NEO-LOTAN PLUS [Interacting]
     Active Substance: HYDROCHLOROTHIAZIDE\LOSARTAN POTASSIUM
     Indication: HYPERTENSIVE HEART DISEASE
     Dosage: 62.5 MG, DAILY
     Route: 048
     Dates: end: 20170610

REACTIONS (8)
  - Drug interaction [Recovered/Resolved]
  - Hyponatraemic syndrome [Recovered/Resolved]
  - Vertigo [Recovered/Resolved]
  - Atrial fibrillation [Unknown]
  - Cardiac failure [Recovered/Resolved]
  - Dizziness [Recovered/Resolved]
  - Asthenia [Recovered/Resolved]
  - Bradycardia [Recovered/Resolved]

NARRATIVE: CASE EVENT DATE: 20170610
